FAERS Safety Report 7442390-1 (Version None)
Quarter: 2011Q2

REPORT INFORMATION
  Report Type: 
  Country: None (occurrence: None)
  Receive Date: 20110428
  Receipt Date: 20110421
  Transmission Date: 20111010
  Serious: Yes (Life-Threatening, Other)
  Sender: FDA-Public Use
  Company Number: JP-ROCHE-764124

PATIENT
  Sex: Female
  Weight: 154 kg

DRUGS (7)
  1. ACTEMRA [Suspect]
     Indication: RHEUMATOID ARTHRITIS
     Route: 041
     Dates: start: 20101113, end: 20110129
  2. OLMETEC [Concomitant]
     Dosage: DOSAGE IS UNCERTAIN.
  3. ISONIAZID [Concomitant]
     Dosage: FORM: PERORAL AGENT, DOSAGE IS UNCERTAIN.
     Route: 048
     Dates: start: 20101030
  4. PROGRAF [Suspect]
     Indication: RHEUMATOID ARTHRITIS
     Route: 048
     Dates: start: 20101112
  5. PROGRAF [Suspect]
     Route: 048
     Dates: start: 20101113, end: 20110215
  6. PREDNISOLONE [Suspect]
     Indication: RHEUMATOID ARTHRITIS
     Dosage: FORM: PER ORAL AGENT.
     Route: 048
  7. LOXONIN [Concomitant]
     Dosage: DOSAGE IS UNCERTAIN.

REACTIONS (3)
  - CELLULITIS [None]
  - TRACHEAL STENOSIS [None]
  - ABSCESS [None]
